FAERS Safety Report 8300374-5 (Version None)
Quarter: 2012Q1

REPORT INFORMATION
  Report Type: 
  Country: None (occurrence: None)
  Receive Date: 20120326
  Receipt Date: 20110613
  Transmission Date: 20120608
  Serious: Yes (Hospitalization)
  Sender: FDA-Public Use
  Company Number: PHHY2011US52205

PATIENT
  Sex: Female

DRUGS (8)
  1. TORSEMIDE [Concomitant]
  2. COREG [Concomitant]
  3. ALLOPURINOL [Concomitant]
  4. TASIGNA [Suspect]
     Dosage: 200 MG, BID
     Dates: start: 20110201
  5. ANAGRELIDE HCL [Concomitant]
  6. MIDODRINE HYDROCHLORIDE [Concomitant]
  7. SYNTHROID [Concomitant]
  8. PREMARIN [Concomitant]

REACTIONS (2)
  - WEIGHT DECREASED [None]
  - NAUSEA [None]
